FAERS Safety Report 12232164 (Version 2)
Quarter: 2016Q2

REPORT INFORMATION
  Report Type: Spontaneous
  Country: US (occurrence: US)
  Receive Date: 20160401
  Receipt Date: 20160413
  Transmission Date: 20160815
  Serious: Yes (Hospitalization, Other)
  Sender: FDA-Public Use
  Company Number: US-FRI-1000083591

PATIENT
  Age: 48 Year
  Sex: Male
  Weight: 85.7 kg

DRUGS (22)
  1. BACTRIM DS [Suspect]
     Active Substance: SULFAMETHOXAZOLE\TRIMETHOPRIM
     Indication: PROPHYLAXIS
     Dosage: 1 DOSAGE FORM
     Route: 048
     Dates: start: 200709
  2. PREDNISONE. [Concomitant]
     Active Substance: PREDNISONE
     Indication: CHEMOTHERAPY
     Dosage: 100 MG
     Route: 048
     Dates: start: 20111031
  3. LOVENOX [Concomitant]
     Active Substance: ENOXAPARIN SODIUM
     Indication: ILL-DEFINED DISORDER
     Dosage: 150 MG/ML ONCE A DAY
     Route: 058
  4. VALTREX [Concomitant]
     Active Substance: VALACYCLOVIR HYDROCHLORIDE
     Indication: HERPES SIMPLEX
     Dosage: 500 MG
     Route: 048
  5. PEGFILGRASTIM [Concomitant]
     Active Substance: PEGFILGRASTIM
     Indication: PROPHYLAXIS
     Dosage: 6 MG/0.6 ML (1 DOSAGE FORM) DAILY
     Route: 058
  6. FLUCONAZOLE. [Concomitant]
     Active Substance: FLUCONAZOLE
     Dosage: 300 MG
     Route: 048
  7. ACETAMINOPHEN/HYDROCODONE [Concomitant]
     Active Substance: ACETAMINOPHEN\HYDROCODONE
     Dosage: 325 MG/5 MG EVERY 6 HOURS
     Route: 048
  8. FOLIC ACID. [Concomitant]
     Active Substance: FOLIC ACID
     Dosage: 1 MG
     Route: 048
  9. PREDNISONE. [Concomitant]
     Active Substance: PREDNISONE
     Indication: LYMPHOMA
  10. CORTEF [Concomitant]
     Active Substance: HYDROCORTISONE
     Dosage: 1 TAB EVERY MORNING AND 1/2 EVERY EVENING
  11. PROCHLORPERAZINE. [Concomitant]
     Active Substance: PROCHLORPERAZINE
     Indication: VOMITING
  12. ABACAVIR. [Concomitant]
     Active Substance: ABACAVIR
     Dosage: 600 MG
     Route: 048
  13. VANCOMYCIN [Concomitant]
     Active Substance: VANCOMYCIN
  14. LAMIVUDINE. [Concomitant]
     Active Substance: LAMIVUDINE
     Dosage: 300 MG
     Route: 048
  15. ONDANSETRON [Concomitant]
     Active Substance: ONDANSETRON
     Indication: VOMITING
  16. KALETRA [Concomitant]
     Active Substance: LOPINAVIR\RITONAVIR
     Dosage: 200MG-50MG TWICE A DAY
     Route: 048
  17. LASIX [Concomitant]
     Active Substance: FUROSEMIDE
  18. CEFTAROLINE FOSAMIL [Suspect]
     Active Substance: CEFTAROLINE FOSAMIL
     Indication: PNEUMONIA STAPHYLOCOCCAL
     Dosage: 1800 MG
     Route: 042
     Dates: start: 20111110, end: 20111112
  19. MARAVIROC [Concomitant]
     Active Substance: MARAVIROC
     Indication: HIV INFECTION
     Dosage: 150 MG
     Route: 048
     Dates: start: 20100127
  20. POTASSIUM CHRLOIDE ER [Concomitant]
     Indication: HYPOKALAEMIA
     Dosage: 40 MEQ
  21. ONDANSETRON [Concomitant]
     Active Substance: ONDANSETRON
     Indication: NAUSEA
     Dosage: 16 MG
     Route: 048
  22. PROCHLORPERAZINE. [Concomitant]
     Active Substance: PROCHLORPERAZINE
     Indication: NAUSEA
     Dosage: 40 MG
     Route: 048

REACTIONS (3)
  - Acute kidney injury [Recovered/Resolved]
  - Febrile neutropenia [Recovered/Resolved]
  - Pancytopenia [Unknown]

NARRATIVE: CASE EVENT DATE: 201111
